FAERS Safety Report 20530196 (Version 4)
Quarter: 2022Q3

REPORT INFORMATION
  Report Type: Spontaneous
  Country: JP (occurrence: JP)
  Receive Date: 20220301
  Receipt Date: 20220713
  Transmission Date: 20221026
  Serious: Yes (Death, Other)
  Sender: FDA-Public Use
  Company Number: JP-ONO-2021JP030338

PATIENT
  Age: 79 Year
  Sex: Male
  Weight: 43 kg

DRUGS (1)
  1. OPDIVO [Suspect]
     Active Substance: NIVOLUMAB
     Indication: Oesophageal carcinoma
     Dosage: 240 MILLIGRAM
     Route: 041
     Dates: start: 20211118, end: 20211118

REACTIONS (10)
  - Pneumonia aspiration [Fatal]
  - Bell^s palsy [Recovering/Resolving]
  - VIth nerve paralysis [Unknown]
  - Autoimmune disorder [Unknown]
  - Blood lactate dehydrogenase decreased [Unknown]
  - Gamma-glutamyltransferase decreased [Unknown]
  - Oedema peripheral [Unknown]
  - Arthralgia [Unknown]
  - Pyrexia [Recovering/Resolving]
  - Malaise [Recovered/Resolved with Sequelae]

NARRATIVE: CASE EVENT DATE: 20211123
